FAERS Safety Report 14211288 (Version 1)
Quarter: 2017Q4

REPORT INFORMATION
  Report Type: Spontaneous
  Country: TR (occurrence: TR)
  Receive Date: 20171121
  Receipt Date: 20171121
  Transmission Date: 20180321
  Serious: Yes (Other)
  Sender: FDA-Public Use
  Company Number: PHHY2017TR168710

PATIENT
  Age: 33 Year
  Sex: Female

DRUGS (1)
  1. METHOTREXATE. [Suspect]
     Active Substance: METHOTREXATE
     Indication: ECTOPIC PREGNANCY
     Dosage: 50 MG/M2, ONCE/SINGLE
     Route: 030

REACTIONS (19)
  - Haematemesis [Unknown]
  - Irritability [Unknown]
  - Oliguria [Unknown]
  - Product use in unapproved indication [Unknown]
  - Generalised erythema [Unknown]
  - Pyrexia [Unknown]
  - Maternal exposure during pregnancy [Unknown]
  - Vomiting [Unknown]
  - Bone marrow failure [Unknown]
  - Acute abdomen [Unknown]
  - Diarrhoea [Unknown]
  - Nausea [Unknown]
  - Confusional state [Unknown]
  - Gastrointestinal inflammation [Unknown]
  - Dehydration [Unknown]
  - Haematuria [Unknown]
  - Toxicity to various agents [Unknown]
  - Mouth ulceration [Unknown]
  - Lethargy [Unknown]
